FAERS Safety Report 21227317 (Version 12)
Quarter: 2025Q4

REPORT INFORMATION
  Report Type: Report from Study
  Country: US (occurrence: US)
  Receive Date: 20220818
  Receipt Date: 20251121
  Transmission Date: 20260118
  Serious: Yes (Hospitalization)
  Sender: TAKEDA
  Company Number: US-TAKEDA-2022TUS056223

PATIENT
  Age: 70 Year
  Sex: Male

DRUGS (4)
  1. MARIBAVIR [Suspect]
     Active Substance: MARIBAVIR
     Indication: Cytomegalovirus infection
     Dosage: 400 MILLIGRAM, BID
     Dates: start: 20220219
  2. MARIBAVIR [Suspect]
     Active Substance: MARIBAVIR
     Indication: Post procedural infection
     Dosage: 400 MILLIGRAM, BID
     Dates: start: 20220228
  3. MARIBAVIR [Suspect]
     Active Substance: MARIBAVIR
     Dosage: 2 DOSAGE FORM, BID
  4. MARIBAVIR [Suspect]
     Active Substance: MARIBAVIR
     Dosage: 400 MILLIGRAM, BID

REACTIONS (7)
  - Peripheral swelling [Unknown]
  - Illness [Unknown]
  - Viral load increased [Unknown]
  - Loss of personal independence in daily activities [Unknown]
  - Product availability issue [Unknown]
  - Product dose omission issue [Unknown]
  - Product use issue [Unknown]
